FAERS Safety Report 5693503-3 (Version None)
Quarter: 2008Q2

REPORT INFORMATION
  Report Type: 
  Country: None (occurrence: None)
  Receive Date: 20080403
  Receipt Date: 20080401
  Transmission Date: 20081010
  Serious: Yes (Other)
  Sender: FDA-Public Use
  Company Number: A0719196A

PATIENT
  Age: 30 Month
  Sex: Male
  Weight: 15 kg

DRUGS (2)
  1. ZINNAT [Suspect]
     Indication: BACTERIAL INFECTION
     Route: 048
     Dates: start: 20080313, end: 20080323
  2. BETAMETHASONE VALERATE [Concomitant]
     Dates: start: 20080314, end: 20080321

REACTIONS (1)
  - THROMBOCYTHAEMIA [None]
